FAERS Safety Report 9203809 (Version 1)
Quarter: 2013Q2

REPORT INFORMATION
  Report Type: Spontaneous
  Country: DE (occurrence: DE)
  Receive Date: 20130402
  Receipt Date: 20130402
  Transmission Date: 20140414
  Serious: Yes (Other)
  Sender: FDA-Public Use
  Company Number: DE-ASTRAZENECA-2013SE19736

PATIENT
  Sex: Female

DRUGS (1)
  1. BELOC-ZOK MITE [Suspect]
     Dosage: LOW DOSED
     Route: 048
     Dates: start: 1988

REACTIONS (6)
  - Low density lipoprotein increased [Unknown]
  - Cardiac disorder [Unknown]
  - Myalgia [Unknown]
  - Lacrimation increased [Unknown]
  - Conjunctivitis [Unknown]
  - Dry mouth [Unknown]
